FAERS Safety Report 24197589 (Version 1)
Quarter: 2024Q3

REPORT INFORMATION
  Report Type: Report from Study
  Country: US (occurrence: US)
  Receive Date: 20240811
  Receipt Date: 20240811
  Transmission Date: 20241017
  Serious: Yes (Hospitalization)
  Sender: ROCHE
  Company Number: US-ROCHE-10000053078

PATIENT
  Age: 39 Year
  Sex: Male
  Weight: 87.54 kg

DRUGS (7)
  1. OCREVUS [Suspect]
     Active Substance: OCRELIZUMAB
     Indication: Relapsing-remitting multiple sclerosis
     Dosage: MORE DOSAGE INFORMATION IS 300MG/10ML SOLUTION
     Route: 042
     Dates: start: 2017
  2. TRAMADOL [Concomitant]
     Active Substance: TRAMADOL\TRAMADOL HYDROCHLORIDE
     Indication: Multiple sclerosis
     Route: 048
     Dates: start: 2017
  3. GABAPENTIN [Concomitant]
     Active Substance: GABAPENTIN
     Indication: Multiple sclerosis
     Route: 048
     Dates: start: 2017
  4. BACLOFEN [Concomitant]
     Active Substance: BACLOFEN
     Indication: Multiple sclerosis
     Route: 048
     Dates: start: 2017
  5. DALFAMPRIDIN EXTENDED RELEASE [Concomitant]
     Indication: Multiple sclerosis
     Route: 048
     Dates: start: 2023
  6. MODAFINIL [Concomitant]
     Active Substance: MODAFINIL
     Indication: Multiple sclerosis
     Dosage: TAKEN ONCE A DAY IN THE MORNING
     Route: 048
     Dates: start: 2023
  7. METFORMIN [Concomitant]
     Active Substance: METFORMIN HYDROCHLORIDE
     Indication: Glucose tolerance impaired
     Route: 048
     Dates: start: 202311

REACTIONS (4)
  - Infection [Recovering/Resolving]
  - Glucose tolerance impaired [Not Recovered/Not Resolved]
  - Off label use [Unknown]
  - Tympanic membrane perforation [Unknown]

NARRATIVE: CASE EVENT DATE: 20170101
